FAERS Safety Report 7940838-7 (Version None)
Quarter: 2011Q4

REPORT INFORMATION
  Report Type: 
  Country: None (occurrence: None)
  Receive Date: 20111128
  Receipt Date: 20111124
  Transmission Date: 20120403
  Serious: Yes (Other)
  Sender: FDA-Public Use
  Company Number: CA-PFIZER INC-2011242349

PATIENT
  Age: 83 Year
  Sex: Female
  Weight: 56.689 kg

DRUGS (8)
  1. FENTANYL [Concomitant]
     Dosage: 1 PATCH EVERY 72 HOURS
     Dates: start: 20080101
  2. LYRICA [Suspect]
     Indication: PAIN
     Dosage: 150 MG, 2X/DAY
     Route: 048
     Dates: start: 20101222
  3. MIRTAZAPINE [Concomitant]
     Dosage: 2 TABLETS, 1X/DAY AT BEDTIME
     Dates: start: 20101201, end: 20110401
  4. ATORVASTATIN [Concomitant]
     Dosage: 1 TABLET, 1X/DAY AT BEDTIME
     Dates: start: 20100801
  5. NITRO-DUR [Concomitant]
     Dosage: UNK
     Dates: start: 20100701
  6. PANTOPRAZOLE [Concomitant]
     Dosage: 1 TABLET, 2X/DAY
     Dates: start: 20100701, end: 20101201
  7. PLAVIX [Concomitant]
     Dosage: 1 TABLET, 1X/DAY EVERY MORNING
     Dates: start: 20100701, end: 20110701
  8. CYMBALTA [Concomitant]
     Dosage: 1 TABLET, 1X/DAY
     Dates: start: 20101201

REACTIONS (1)
  - DEAFNESS [None]
